FAERS Safety Report 13790020 (Version 3)
Quarter: 2018Q1

REPORT INFORMATION
  Report Type: Report from Study
  Country: US (occurrence: US)
  Receive Date: 20170725
  Receipt Date: 20180205
  Transmission Date: 20180508
  Serious: Yes (Hospitalization, Other)
  Sender: FDA-Public Use
  Company Number: US-JNJFOC-20170717555

PATIENT
  Age: 60 Year
  Sex: Male
  Weight: 113.4 kg

DRUGS (1)
  1. STELARA [Suspect]
     Active Substance: USTEKINUMAB
     Indication: PSORIASIS
     Route: 058
     Dates: start: 201707

REACTIONS (7)
  - Weight increased [Not Recovered/Not Resolved]
  - Drug dose omission [Unknown]
  - Viral upper respiratory tract infection [Recovering/Resolving]
  - Asthma [Recovering/Resolving]
  - Calculus bladder [Not Recovered/Not Resolved]
  - Bronchitis [Recovering/Resolving]
  - Muscle atrophy [Not Recovered/Not Resolved]

NARRATIVE: CASE EVENT DATE: 2017
